FAERS Safety Report 22239380 (Version 5)
Quarter: 2024Q2

REPORT INFORMATION
  Report Type: Report from Study
  Country: GB (occurrence: GB)
  Receive Date: 20230421
  Receipt Date: 20240405
  Transmission Date: 20240716
  Serious: Yes (Death, Hospitalization, Other)
  Sender: FDA-Public Use
  Company Number: GB-CELLTRION INC.-2023GB008302

PATIENT

DRUGS (11)
  1. BEVACIZUMAB [Suspect]
     Active Substance: BEVACIZUMAB
     Indication: Hepatocellular carcinoma
     Dosage: 1200 MILLIGRAM
     Route: 042
     Dates: start: 20211125
  2. ATEZOLIZUMAB [Suspect]
     Active Substance: ATEZOLIZUMAB
     Indication: Hepatocellular carcinoma
     Dosage: START AND END DATE OF MOST RECENT DOSE OF STUDY DRUG PRIOR TO AE:AND SAE 16/MAY/2022 (EVERY 3 WEEKS)
     Route: 042
     Dates: start: 20211125
  3. ATEZOLIZUMAB [Concomitant]
     Active Substance: ATEZOLIZUMAB
     Route: 042
  4. CARVEDILOL [Concomitant]
     Active Substance: CARVEDILOL
     Dosage: EVERY 0.5 DAY
     Route: 048
     Dates: start: 20220110
  5. FOLIC ACID [Concomitant]
     Active Substance: FOLIC ACID
     Dosage: 5 MILLIGRAM, QD
     Dates: start: 20140331
  6. LENVATINIB [Concomitant]
     Active Substance: LENVATINIB
     Dosage: UNK
     Dates: start: 20220715, end: 20221101
  7. LEVOTHYROXINE [Concomitant]
     Active Substance: LEVOTHYROXINE\LEVOTHYROXINE SODIUM
     Indication: Adverse event
     Dosage: QD
     Dates: start: 20210107
  8. LOPERAMIDE [Concomitant]
     Active Substance: LOPERAMIDE
     Dosage: EVERY 0.5 DAY
     Dates: start: 20150106
  9. ACETAMINOPHEN [Concomitant]
     Active Substance: ACETAMINOPHEN
     Indication: Pain
     Dosage: UNK
     Dates: start: 20220311
  10. THIAMINE [Concomitant]
     Active Substance: THIAMINE
     Dosage: EVERY 0.5 DAY
     Dates: start: 20100413
  11. NIACINAMIDE\PYRIDOXINE HYDROCHLORIDE\RIBOFLAVIN\THIAMINE HYDROCHLORIDE [Concomitant]
     Active Substance: NIACINAMIDE\PYRIDOXINE HYDROCHLORIDE\RIBOFLAVIN\THIAMINE HYDROCHLORIDE
     Dosage: EVERY 1 DAY
     Dates: start: 20080902

REACTIONS (3)
  - Death [Fatal]
  - Blood alkaline phosphatase increased [Not Recovered/Not Resolved]
  - Intentional product use issue [Unknown]

NARRATIVE: CASE EVENT DATE: 20221120
